FAERS Safety Report 9878823 (Version 2)
Quarter: 2014Q1

REPORT INFORMATION
  Report Type: Spontaneous
  Country: US (occurrence: US)
  Receive Date: 20140206
  Receipt Date: 20140206
  Transmission Date: 20141002
  Serious: No
  Sender: FDA-Public Use
  Company Number: US-ALLERGAN-1310121US

PATIENT
  Sex: Female

DRUGS (3)
  1. BOTOX COSMETIC [Suspect]
     Indication: SKIN WRINKLING
     Dosage: 25 UNITS, SINGLE
     Route: 030
     Dates: start: 20130625, end: 20130625
  2. BOTOX COSMETIC [Suspect]
     Dosage: UNK
     Dates: start: 20040415, end: 20040415
  3. LOSARTAN [Concomitant]
     Indication: HYPERTENSION

REACTIONS (3)
  - Off label use [Unknown]
  - Blood pressure increased [Recovered/Resolved]
  - Headache [Recovered/Resolved]
